FAERS Safety Report 26073893 (Version 1)
Quarter: 2025Q4

REPORT INFORMATION
  Report Type: Report from Study
  Country: US (occurrence: US)
  Receive Date: 20251121
  Receipt Date: 20251121
  Transmission Date: 20260118
  Serious: Yes (Other)
  Sender: ROCHE
  Company Number: US-ROCHE-10000345602

PATIENT
  Age: 36 Year
  Sex: Female
  Weight: 91.17 kg

DRUGS (16)
  1. ACTEMRA [Suspect]
     Active Substance: TOCILIZUMAB
     Indication: Keratitis interstitial
     Dosage: SHE STARTED TOCILIZUMAB ACTPEN WITH OUR PRACTICE ON 15-MAR-2019. SHE WAS ON TOCILIZUMAB ACTPEN LONGE
     Route: 058
  2. ACTEMRA [Suspect]
     Active Substance: TOCILIZUMAB
     Indication: Keratitis interstitial
     Dosage: 162MG/0.9ML
     Route: 058
  3. ACTEMRA [Suspect]
     Active Substance: TOCILIZUMAB
  4. ACETAZOLAMIDE [Concomitant]
     Active Substance: ACETAZOLAMIDE
     Route: 048
  5. AYR [GUAIFENESIN;THEOPHYLLINE] [Concomitant]
     Route: 045
  6. CALCIUM [Concomitant]
     Active Substance: CALCIUM
     Dosage: 500-125 MG
  7. CETIRIZINE HCL [Concomitant]
     Active Substance: CETIRIZINE HYDROCHLORIDE
     Route: 048
     Dates: start: 20190315
  8. CRYSELLE [Concomitant]
     Active Substance: ETHINYL ESTRADIOL\NORGESTREL
  9. HYDROXYZINE HYDROCHLORIDE [Concomitant]
     Active Substance: HYDROXYZINE HYDROCHLORIDE
     Route: 048
  10. IBUPROFEN [Concomitant]
     Active Substance: IBUPROFEN
     Route: 048
     Dates: start: 20151214
  11. MELOXICAM [Concomitant]
     Active Substance: MELOXICAM
     Route: 048
  12. MUPIROCIN [Concomitant]
     Active Substance: MUPIROCIN
     Dates: start: 20190907
  13. PREDNISOLONE ACETATE [Concomitant]
     Active Substance: PREDNISOLONE ACETATE
     Dosage: 1% OPTHALAMIC SUSPENSION
  14. PREDNISONE [Concomitant]
     Active Substance: PREDNISONE
     Route: 048
  15. RANITIDINE HYDROCHLORIDE [Concomitant]
     Active Substance: RANITIDINE HYDROCHLORIDE
  16. CYCLOSPORINE [Concomitant]
     Active Substance: CYCLOSPORINE
     Dates: start: 20150723

REACTIONS (18)
  - Arthralgia [Unknown]
  - Urticaria [Unknown]
  - Dysuria [Unknown]
  - Pernicious anaemia [Unknown]
  - Intracranial pressure increased [Unknown]
  - Pruritus [Unknown]
  - Lactase deficiency [Unknown]
  - Optic disc oedema [Unknown]
  - Mean cell volume decreased [Unknown]
  - Thrombocytosis [Unknown]
  - Toothache [Unknown]
  - Uveitis [Unknown]
  - Vertigo [Unknown]
  - Upper respiratory tract infection [Unknown]
  - Dysmenorrhoea [Unknown]
  - Meningitis aseptic [Unknown]
  - Off label use [Unknown]
  - Diarrhoea [Unknown]
